FAERS Safety Report 9289552 (Version 2)
Quarter: 2013Q2

REPORT INFORMATION
  Report Type: Spontaneous
  Country: BR (occurrence: BR)
  Receive Date: 20130515
  Receipt Date: 20130613
  Transmission Date: 20140414
  Serious: Yes (Other)
  Sender: FDA-Public Use
  Company Number: BR-AMGEN-BRASP2013033245

PATIENT
  Age: 42 Year
  Sex: Female

DRUGS (4)
  1. ENBREL [Suspect]
     Indication: RHEUMATOID ARTHRITIS
     Dosage: POWDER AND SOLVENT FOR SOLUTION FOR INJECTION
     Dates: start: 201102
  2. ENBREL [Suspect]
     Dosage: 50 MG, ONCE WEEKLY
     Route: 065
     Dates: start: 201205
  3. CALCORT [Concomitant]
     Dosage: 30 MG, 1X/DAY
  4. PROFENID [Concomitant]
     Indication: PAIN
     Dosage: UNK UNK, AS NECESSARY

REACTIONS (4)
  - Rheumatoid arthritis [Unknown]
  - Gallbladder disorder [Unknown]
  - Weight decreased [Unknown]
  - Pain [Not Recovered/Not Resolved]
